FAERS Safety Report 9186156 (Version 2)
Quarter: 2013Q2

REPORT INFORMATION
  Report Type: Report from Study
  Country: US (occurrence: US)
  Receive Date: 20130325
  Receipt Date: 20130422
  Transmission Date: 20140414
  Serious: Yes (Other)
  Sender: FDA-Public Use
  Company Number: US-ABBOTT-13P-163-1062637-00

PATIENT
  Age: 15 Year
  Sex: Male

DRUGS (8)
  1. HUMIRA [Suspect]
     Indication: CROHN^S DISEASE
     Dates: start: 201110
  2. ABILIFY [Concomitant]
     Indication: ATTENTION DEFICIT/HYPERACTIVITY DISORDER
  3. CONCERTA [Concomitant]
     Indication: ATTENTION DEFICIT/HYPERACTIVITY DISORDER
  4. RANITIDINE [Concomitant]
     Indication: HYPERCHLORHYDRIA
  5. MELATONIN [Concomitant]
     Indication: SLEEP DISORDER
     Dosage: AT BEDTIME
  6. MULTIVITAMINS [Concomitant]
     Indication: PRODUCT USED FOR UNKNOWN INDICATION
  7. ZOLOFT [Concomitant]
     Indication: ANXIETY
  8. ZOLOFT [Concomitant]
     Indication: DEPRESSION

REACTIONS (6)
  - Fistula [Recovered/Resolved]
  - Intestinal resection [Recovered/Resolved]
  - Fistula [Recovered/Resolved]
  - Rash macular [Not Recovered/Not Resolved]
  - Suicidal ideation [Recovered/Resolved]
  - Rash macular [Not Recovered/Not Resolved]
